FAERS Safety Report 8598858-8 (Version None)
Quarter: 2012Q3

REPORT INFORMATION
  Report Type: 
  Country: None (occurrence: None)
  Receive Date: 20120816
  Receipt Date: 20120806
  Transmission Date: 20120928
  Serious: Yes (Hospitalization, Other)
  Sender: FDA-Public Use
  Company Number: US-JNJFOC-20120803799

PATIENT
  Sex: Female
  Weight: 49.9 kg

DRUGS (2)
  1. REMICADE [Suspect]
     Indication: COLITIS ULCERATIVE
     Route: 042
     Dates: start: 20120101, end: 20120531
  2. ASACOL [Concomitant]

REACTIONS (6)
  - ANAEMIA [None]
  - NEUTROPENIA [None]
  - CONSTIPATION [None]
  - AUTONOMIC NERVOUS SYSTEM IMBALANCE [None]
  - GASTROINTESTINAL MOTILITY DISORDER [None]
  - DIABETES INSIPIDUS [None]
